FAERS Safety Report 6767696-0 (Version None)
Quarter: 2010Q2

REPORT INFORMATION
  Report Type: 
  Country: None (occurrence: None)
  Receive Date: 20100614
  Receipt Date: 20100602
  Transmission Date: 20101027
  Serious: Yes (Hospitalization)
  Sender: FDA-Public Use
  Company Number: US-ROCHE-686023

PATIENT
  Sex: Female
  Weight: 53.5 kg

DRUGS (3)
  1. AVASTIN [Suspect]
     Indication: MACULAR DEGENERATION
     Route: 031
     Dates: start: 20090316
  2. BONIVA [Suspect]
     Indication: OSTEOPOROSIS
     Route: 048
  3. CALCIUM/VITAMIN D [Concomitant]

REACTIONS (8)
  - BONE DENSITY ABNORMAL [None]
  - BREAST FIBROMA [None]
  - BREAST PAIN [None]
  - EYE PAIN [None]
  - FIBROMA [None]
  - HAEMATOMA [None]
  - INJECTION SITE PAIN [None]
  - NO THERAPEUTIC RESPONSE [None]
